FAERS Safety Report 19286912 (Version 1)
Quarter: 2021Q2

REPORT INFORMATION
  Report Type: Spontaneous
  Country: US (occurrence: US)
  Receive Date: 20210522
  Receipt Date: 20210522
  Transmission Date: 20210717
  Serious: Yes (Hospitalization, Other)
  Sender: FDA-Public Use
  Company Number: US-EPICPHARMA-US-2021EPCLIT00533

PATIENT
  Age: 12 Year
  Sex: Female

DRUGS (2)
  1. AMLODIPINE BESYLATE. [Suspect]
     Active Substance: AMLODIPINE BESYLATE
     Indication: PRODUCT USED FOR UNKNOWN INDICATION
     Dosage: 900 MG
     Route: 048
  2. INSULIN [Interacting]
     Active Substance: INSULIN NOS
     Route: 065

REACTIONS (8)
  - Respiratory acidosis [Recovered/Resolved]
  - Intentional overdose [Unknown]
  - Hypotension [Recovered/Resolved]
  - Generalised tonic-clonic seizure [Recovered/Resolved with Sequelae]
  - Metabolic acidosis [Recovered/Resolved]
  - Mental status changes [Recovered/Resolved with Sequelae]
  - Shock [Recovered/Resolved]
  - Toxicity to various agents [Recovered/Resolved]
